FAERS Safety Report 25033264 (Version 1)
Quarter: 2025Q1

REPORT INFORMATION
  Report Type: Spontaneous
  Country: PT (occurrence: PT)
  Receive Date: 20250303
  Receipt Date: 20250303
  Transmission Date: 20250409
  Serious: Yes (Death, Life-Threatening, Hospitalization, Other)
  Sender: MYLAN
  Company Number: PT-BIAL-BIAL-18350

PATIENT
  Age: 80 Year
  Sex: Female

DRUGS (3)
  1. ALLOPURINOL [Suspect]
     Active Substance: ALLOPURINOL
     Indication: Gouty arthritis
  2. BISOPROLOL [Concomitant]
     Active Substance: BISOPROLOL
     Indication: Product used for unknown indication
  3. PREDNISOLONE [Concomitant]
     Active Substance: PREDNISOLONE
     Indication: Product used for unknown indication

REACTIONS (7)
  - Toxic epidermal necrolysis [Fatal]
  - Septic shock [Fatal]
  - Pneumonia [Fatal]
  - Staphylococcal bacteraemia [Fatal]
  - Stenotrophomonas bacteraemia [Fatal]
  - Device related infection [Fatal]
  - Multiple organ dysfunction syndrome [Fatal]
